FAERS Safety Report 11917784 (Version 1)
Quarter: 2016Q1

REPORT INFORMATION
  Report Type: Spontaneous
  Country: CN (occurrence: CN)
  Receive Date: 20160114
  Receipt Date: 20160114
  Transmission Date: 20160526
  Serious: Yes (Life-Threatening)
  Sender: FDA-Public Use
  Company Number: CN-PFIZER INC-2016018592

PATIENT
  Age: 2 Year
  Sex: Male
  Weight: 17.5 kg

DRUGS (2)
  1. SOLU-MEDROL [Suspect]
     Active Substance: METHYLPREDNISOLONE SODIUM SUCCINATE
     Indication: INFECTION
     Dosage: 10 MG, 1X/DAY
     Route: 041
     Dates: start: 20150817, end: 20150817
  2. GLUCOSE INJECTION [Concomitant]
     Indication: VEHICLE SOLUTION USE
     Dosage: 50 ML, 1X/DAY
     Route: 041
     Dates: start: 20150817, end: 20150817

REACTIONS (4)
  - Dysphoria [Recovering/Resolving]
  - Crying [Recovering/Resolving]
  - Dyspnoea [Recovering/Resolving]
  - Congenital laryngeal stridor [Recovering/Resolving]

NARRATIVE: CASE EVENT DATE: 20150817
